FAERS Safety Report 5445830-2 (Version None)
Quarter: 2007Q3

REPORT INFORMATION
  Report Type: 
  Country: None (occurrence: None)
  Receive Date: 20070904
  Receipt Date: 20070820
  Transmission Date: 20080115
  Serious: Yes (Hospitalization)
  Sender: FDA-Public Use
  Company Number: 2007RR-09021

PATIENT
  Age: 14 Year
  Sex: Female
  Weight: 54 kg

DRUGS (1)
  1. ACETAMINOPHEN [Suspect]
     Indication: OVERDOSE
     Dosage: 500 MG, ORAL
     Route: 048

REACTIONS (2)
  - HYPOKALAEMIA [None]
  - OVERDOSE [None]
